FAERS Safety Report 23667084 (Version 1)
Quarter: 2024Q1

REPORT INFORMATION
  Report Type: Spontaneous
  Country: US (occurrence: US)
  Receive Date: 20240325
  Receipt Date: 20240325
  Transmission Date: 20240409
  Serious: Yes (Hospitalization, Other)
  Sender: FDA-Public Use
  Company Number: US-TEVA-VS-3169851

PATIENT
  Age: 70 Year
  Sex: Female
  Weight: 85.275 kg

DRUGS (1)
  1. AJOVY [Suspect]
     Active Substance: FREMANEZUMAB-VFRM
     Indication: Migraine
     Route: 065

REACTIONS (4)
  - Illness [Unknown]
  - Asthenia [Unknown]
  - Drug hypersensitivity [Unknown]
  - Surgery [Unknown]
